FAERS Safety Report 9432800 (Version 3)
Quarter: 2014Q3

REPORT INFORMATION
  Report Type: Spontaneous
  Country: US (occurrence: US)
  Receive Date: 20130731
  Receipt Date: 20140730
  Transmission Date: 20150326
  Serious: Yes (Other)
  Sender: FDA-Public Use
  Company Number: US-BAYER-2013-091613

PATIENT
  Age: 34 Year
  Sex: Female
  Weight: 64 kg

DRUGS (1)
  1. MIRENA [Suspect]
     Active Substance: LEVONORGESTREL
     Indication: CONTRACEPTION
     Dosage: 20 MCG/24HR, CONT
     Route: 015
     Dates: start: 20120723, end: 20130717

REACTIONS (5)
  - Device expulsion [None]
  - Drug ineffective [None]
  - Abortion spontaneous [None]
  - Uterine leiomyoma [None]
  - Pregnancy with contraceptive device [None]

NARRATIVE: CASE EVENT DATE: 20130717
